FAERS Safety Report 23179629 (Version 5)
Quarter: 2025Q2

REPORT INFORMATION
  Report Type: Spontaneous
  Country: CZ (occurrence: CZ)
  Receive Date: 20231114
  Receipt Date: 20250403
  Transmission Date: 20250717
  Serious: Yes (Hospitalization, Other)
  Sender: ABBVIE
  Company Number: CZ-Gedeon Richter Plc.-2023_GR_010930

PATIENT
  Age: 38 Year
  Sex: Female

DRUGS (2)
  1. LEVONORGESTREL [Suspect]
     Active Substance: LEVONORGESTREL
     Indication: Contraception
     Route: 015
     Dates: start: 20201125, end: 20201125
  2. LEVONORGESTREL [Suspect]
     Active Substance: LEVONORGESTREL
     Route: 015
     Dates: start: 20201125, end: 202209

REACTIONS (4)
  - Intermenstrual bleeding [Not Recovered/Not Resolved]
  - Vaginal haemorrhage [Not Recovered/Not Resolved]
  - Device dislocation [Unknown]
  - Device dislocation [Not Recovered/Not Resolved]

NARRATIVE: CASE EVENT DATE: 20201125
